FAERS Safety Report 6270235-4 (Version None)
Quarter: 2009Q3

REPORT INFORMATION
  Report Type: 
  Country: None (occurrence: None)
  Receive Date: 20090716
  Receipt Date: 20090624
  Transmission Date: 20100115
  Serious: No
  Sender: FDA-Public Use
  Company Number: US-BAYER-200911983BCC

PATIENT
  Age: 54 Year
  Sex: Male
  Weight: 109 kg

DRUGS (3)
  1. ALEVE (CAPLET) [Suspect]
     Indication: BACK PAIN
     Dosage: TOOK 1 OR 2 CAPLET
     Route: 048
     Dates: start: 19980101
  2. GLUCOPHAGE XL [Concomitant]
     Route: 065
  3. HIGH BLOOD PRESSURE MEDICATION [Concomitant]
     Route: 065

REACTIONS (2)
  - ABDOMINAL DISCOMFORT [None]
  - ABDOMINAL PAIN UPPER [None]
